FAERS Safety Report 20474464 (Version 1)
Quarter: 2022Q1

REPORT INFORMATION
  Report Type: Spontaneous
  Country: US (occurrence: None)
  Receive Date: 20220214
  Receipt Date: 20220214
  Transmission Date: 20220423
  Serious: Yes (Hospitalization, Disabling)
  Sender: FDA-Public Use
  Company Number: None

PATIENT
  Age: 71 Year
  Sex: Female

DRUGS (1)
  1. BOTOX [Suspect]
     Active Substance: ONABOTULINUMTOXINA
     Indication: Torticollis
     Dates: start: 20211216, end: 20211216

REACTIONS (6)
  - Arthralgia [None]
  - Neck pain [None]
  - Coordination abnormal [None]
  - Dizziness [None]
  - Vision blurred [None]
  - Gait disturbance [None]

NARRATIVE: CASE EVENT DATE: 20211216
